FAERS Safety Report 8037646-8 (Version None)
Quarter: 2012Q1

REPORT INFORMATION
  Report Type: 
  Country: None (occurrence: None)
  Receive Date: 20120111
  Receipt Date: 20120103
  Transmission Date: 20120608
  Serious: Yes (Hospitalization, Other)
  Sender: FDA-Public Use
  Company Number: DE-ELI_LILLY_AND_COMPANY-DE201201000315

PATIENT
  Age: 82 Year
  Sex: Female

DRUGS (3)
  1. FORTEO [Suspect]
     Indication: OSTEOPOROSIS
     Dosage: UNK, QD
     Route: 058
     Dates: start: 20101001
  2. TRAMADOL HCL [Concomitant]
     Indication: ANALGESIC THERAPY
  3. CALCIGEN D [Concomitant]
     Dosage: UNK, BID

REACTIONS (2)
  - PNEUMONIA [None]
  - CARDIAC FLUTTER [None]
